FAERS Safety Report 5148663-X (Version None)
Quarter: 2006Q4

REPORT INFORMATION
  Report Type: 
  Country: None (occurrence: None)
  Receive Date: 20061107
  Receipt Date: 20061029
  Transmission Date: 20070319
  Serious: Yes (Other)
  Sender: FDA-Public Use
  Company Number: 2006131985

PATIENT
  Sex: Female

DRUGS (1)
  1. LUBRIDERM DAILY MOISTURE WITH SPF 15 (OXYBENZONE, ETHYLHEXYL P-METHOXY [Suspect]
     Dosage: TOPICAL
     Route: 061

REACTIONS (1)
  - BREAST CANCER [None]
